FAERS Safety Report 9116994 (Version 2)
Quarter: 2013Q1

REPORT INFORMATION
  Report Type: Spontaneous
  Country: US (occurrence: US)
  Receive Date: 20130225
  Receipt Date: 20130227
  Transmission Date: 20140127
  Serious: No
  Sender: FDA-Public Use
  Company Number: US-PFIZER INC-2013065413

PATIENT
  Age: 77 Year
  Sex: Male
  Weight: 102 kg

DRUGS (16)
  1. XELJANZ [Suspect]
     Indication: RHEUMATOID ARTHRITIS
     Dosage: 5 MG, 2X/DAY
     Route: 048
     Dates: start: 20130129, end: 20130221
  2. ZETIA [Concomitant]
     Indication: BLOOD CHOLESTEROL INCREASED
     Dosage: 10 MG, 1X/DAY (DAILY)
  3. LOSARTAN [Concomitant]
     Dosage: 100 MG, 2X/DAY
  4. CARBIDOPA/LEVODOPA [Concomitant]
     Dosage: 25MG/100MG, 2X/DAY
  5. FUROSEMIDE [Concomitant]
     Dosage: 20 MG
  6. POTASSIUM [Concomitant]
     Dosage: 20 MG
  7. LEVOTHYROXINE [Concomitant]
     Dosage: 0.125 MG, 2X/DAY
  8. LISINOPRIL [Concomitant]
     Dosage: 40 MG, 1X/DAY (DAILY)
  9. PREDNISONE [Concomitant]
     Dosage: 2.5 MG, 1X/DAY (DAILY)
  10. FOLIC ACID [Concomitant]
     Dosage: 1 MG, 1X/DAY (DAILY)
  11. LEFLUNOMIDE [Concomitant]
     Dosage: 10 MG, UNK
  12. SULFASALAZINE [Concomitant]
     Dosage: 500 MG, 4X/DAY
  13. CALCIUM [Concomitant]
     Dosage: 600 MG, 2X/DAY
  14. OMEGA 3-6-9 COMPLEX [Concomitant]
     Dosage: UNK, 2X/DAY
  15. VITAMIN B1 [Concomitant]
     Dosage: 100 MG, 1X/DAY (DAILY)
  16. VITAMIN B3 [Concomitant]
     Dosage: 5000 IU, 1X/DAY (DAILY)

REACTIONS (1)
  - Cough [Not Recovered/Not Resolved]
